FAERS Safety Report 4719629-6 (Version None)
Quarter: 2005Q3

REPORT INFORMATION
  Report Type: 
  Country: None (occurrence: None)
  Receive Date: 20050721
  Receipt Date: 20040413
  Transmission Date: 20060218
  Serious: No
  Sender: FDA-Public Use
  Company Number: US-GLAXOSMITHKLINE-A0508246A

PATIENT
  Sex: Female

DRUGS (13)
  1. AVANDIA [Suspect]
     Route: 048
  2. LASIX [Concomitant]
  3. BENICAR [Concomitant]
  4. GLUCOVANCE [Concomitant]
  5. ISORDIL [Concomitant]
  6. TOPROL-XL [Concomitant]
  7. PLAVIX [Concomitant]
     Route: 048
  8. PROCARDIA XL [Concomitant]
  9. GLUCOVANCE [Concomitant]
  10. HYDROCHLOROTHIAZIDE [Concomitant]
  11. ASPIRIN [Concomitant]
  12. MONOPRIL [Concomitant]
  13. FOLIC ACID [Concomitant]

REACTIONS (1)
  - ADVERSE EVENT [None]
